FAERS Safety Report 4508733-3 (Version None)
Quarter: 2004Q4

REPORT INFORMATION
  Report Type: 
  Country: None (occurrence: None)
  Receive Date: 20041122
  Receipt Date: 20041122
  Transmission Date: 20050328
  Serious: Yes (Hospitalization)
  Sender: FDA-Public Use
  Company Number: None

PATIENT
  Age: 37 Year
  Sex: Male
  Weight: 124.2 kg

DRUGS (15)
  1. WARFARIN [Suspect]
     Indication: DEEP VEIN THROMBOSIS
     Dosage: 7.5 MG, QD, ORAL
     Route: 048
  2. PHYTONADIONE [Concomitant]
  3. BISACODYL (ENTERIC COATED) [Concomitant]
  4. TRAMADOL [Concomitant]
  5. ACETAMINOPHEN [Concomitant]
  6. VENLAFAXINE HCL [Concomitant]
  7. GABAPENTIN [Concomitant]
  8. CALCIUM ACETATE [Concomitant]
  9. TEMAZEPAM [Concomitant]
  10. PROMETHAZINE [Concomitant]
  11. COUMADIN [Concomitant]
  12. BISACODYL (ENTERIC COATED) [Concomitant]
  13. ALOH/MGOH/SIMETH XTRA STRENGTH [Concomitant]
  14. VANCOMYCIN [Concomitant]
  15. PIPERACILLIN/TAZOBACTAM [Concomitant]

REACTIONS (1)
  - INTERNATIONAL NORMALISED RATIO INCREASED [None]
